FAERS Safety Report 11151971 (Version 2)
Quarter: 2015Q4

REPORT INFORMATION
  Report Type: Spontaneous
  Country: IT (occurrence: IT)
  Receive Date: 20150601
  Receipt Date: 20151223
  Transmission Date: 20160304
  Serious: Yes (Other)
  Sender: FDA-Public Use
  Company Number: IT-BAYER-2015-276914

PATIENT
  Age: 36 Year
  Sex: Female
  Weight: 101 kg

DRUGS (6)
  1. DINOPROSTONE. [Concomitant]
     Active Substance: DINOPROSTONE
     Indication: LABOUR INDUCTION
     Dosage: DAILY DOSE 10 MG
     Route: 067
     Dates: start: 20150523, end: 20150523
  2. NIFEDIPINE. [Interacting]
     Active Substance: NIFEDIPINE
     Indication: PRE-ECLAMPSIA
     Dosage: DAILY DOSE 40 MG
     Route: 048
     Dates: start: 20150522, end: 20150523
  3. METHYLDOPA. [Interacting]
     Active Substance: METHYLDOPA
     Indication: PRE-ECLAMPSIA
     Dosage: DAILY DOSE 2 G
     Route: 048
     Dates: start: 20150519, end: 20150523
  4. CALCIUM [Suspect]
     Active Substance: CALCIUM
     Indication: PRE-ECLAMPSIA
     Dosage: DAILY DOSE 1 G
     Route: 048
     Dates: start: 20150519, end: 20150523
  5. AMPICILLIN [Concomitant]
     Active Substance: AMPICILLIN
     Indication: CULTURE URINE POSITIVE
     Dosage: DAILY DOSE 2 G
     Route: 042
     Dates: start: 20150523, end: 20150523
  6. VITAMIN E [Concomitant]
     Active Substance: .ALPHA.-TOCOPHEROL
     Dosage: DAILY DOSE 1 DF
     Dates: start: 20150519

REACTIONS (4)
  - Procedural hypotension [Recovering/Resolving]
  - Sopor [Recovering/Resolving]
  - Drug interaction [Recovering/Resolving]
  - Erythema [Recovering/Resolving]

NARRATIVE: CASE EVENT DATE: 20150523
